FAERS Safety Report 6110213-9 (Version None)
Quarter: 2009Q1

REPORT INFORMATION
  Report Type: 
  Country: None (occurrence: None)
  Receive Date: 20090310
  Receipt Date: 20090302
  Transmission Date: 20090719
  Serious: Yes (Hospitalization)
  Sender: FDA-Public Use
  Company Number: SE-ABBOTT-09P-150-0501805-00

PATIENT
  Sex: Male

DRUGS (10)
  1. HUMIRA [Suspect]
     Indication: PSORIASIS
     Route: 058
     Dates: start: 20080901, end: 20081101
  2. HUMIRA [Suspect]
     Dosage: 80MG LOADING DOSE
     Route: 058
     Dates: start: 20080901, end: 20080901
  3. HUMIRA [Suspect]
     Route: 058
     Dates: start: 20080901, end: 20080901
  4. METOJECT [Suspect]
     Indication: PSORIASIS
     Dates: start: 20050101, end: 20081101
  5. SELOKENZOC [Concomitant]
     Indication: DRUG USE FOR UNKNOWN INDICATION
  6. LEVOTHYROXINE SODIUM [Concomitant]
     Indication: DRUG USE FOR UNKNOWN INDICATION
  7. TROMBYL [Concomitant]
     Indication: DRUG USE FOR UNKNOWN INDICATION
     Dates: end: 20081101
  8. CIPRAMIL [Concomitant]
     Indication: DRUG USE FOR UNKNOWN INDICATION
  9. OMEPRAZOLE [Concomitant]
     Indication: DRUG USE FOR UNKNOWN INDICATION
  10. SIMVASTIN [Concomitant]
     Indication: DRUG USE FOR UNKNOWN INDICATION

REACTIONS (3)
  - CHEST PAIN [None]
  - FACIAL PALSY [None]
  - PARAESTHESIA [None]
